FAERS Safety Report 9491027 (Version 1)
Quarter: 2013Q3

REPORT INFORMATION
  Report Type: Spontaneous
  Country: US (occurrence: None)
  Receive Date: 20130826
  Receipt Date: 20130826
  Transmission Date: 20140515
  Serious: Yes (Hospitalization)
  Sender: FDA-Public Use
  Company Number: USA/USA/13/0034175

PATIENT
  Age: 35 Year
  Sex: Female

DRUGS (5)
  1. FLUOXETINE (FLUOXETINE) [Suspect]
     Indication: PRODUCT USED FOR UNKNOWN INDICATION
  2. ZOLPIDEM (ZOLPIDEM TARTRATE) [Suspect]
     Indication: PRODUCT USED FOR UNKNOWN INDICATION
  3. TRIAMCINOLONE ACETONIDE [Suspect]
     Indication: PRODUCT USED FOR UNKNOWN INDICATION
     Route: 013
  4. LACTULOSE [Suspect]
     Indication: PRODUCT USED FOR UNKNOWN INDICATION
  5. POTASSIUM CHLORIDE (POTASSIUM CHLORIDE) [Suspect]
     Indication: PRODUCT USED FOR UNKNOWN INDICATION

REACTIONS (5)
  - Drug interaction [None]
  - Adrenal suppression [None]
  - Electrolyte imbalance [None]
  - Peptic ulcer [None]
  - Refusal of treatment by patient [None]
